FAERS Safety Report 15891046 (Version 1)
Quarter: 2019Q1

REPORT INFORMATION
  Report Type: Spontaneous
  Country: BR (occurrence: BR)
  Receive Date: 20190130
  Receipt Date: 20190130
  Transmission Date: 20190417
  Serious: Yes (Death, Life-Threatening)
  Sender: FDA-Public Use
  Company Number: BR-NAPPMUNDI-GBR-2019-0063751

PATIENT
  Age: 74 Year
  Sex: Female

DRUGS (3)
  1. DIMETICONE [Concomitant]
     Active Substance: DIMETHICONE
     Dosage: UNK
  2. OXYCONTIN [Suspect]
     Active Substance: OXYCODONE HYDROCHLORIDE
     Indication: CANCER PAIN
     Dosage: 1 TABLET, DAILY (ABOUT 4 MONTHS AGO)
     Route: 048
  3. DIPYRONE [Concomitant]
     Active Substance: DIPYRONE
     Dosage: UNK

REACTIONS (5)
  - Hospitalisation [Fatal]
  - Blood pressure decreased [Unknown]
  - Tremor [Unknown]
  - Chills [Unknown]
  - Nausea [Unknown]
